FAERS Safety Report 5034814-4 (Version None)
Quarter: 2006Q2

REPORT INFORMATION
  Report Type: 
  Country: None (occurrence: None)
  Receive Date: 20060509
  Receipt Date: 20050418
  Transmission Date: 20061013
  Serious: Yes (Disabling)
  Sender: FDA-Public Use
  Company Number: WAES 0504USA03208

PATIENT
  Age: 8 Year
  Sex: Female

DRUGS (1)
  1. COGENTIN [Suspect]
     Indication: EXTRAPYRAMIDAL DISORDER
     Dosage: 0.5 MG/DAILY/PO
     Route: 048
     Dates: start: 20050314

REACTIONS (1)
  - VISION BLURRED [None]
